FAERS Safety Report 7112083-9 (Version None)
Quarter: 2010Q4

REPORT INFORMATION
  Report Type: 
  Country: None (occurrence: None)
  Receive Date: 20101119
  Receipt Date: 20101109
  Transmission Date: 20110411
  Serious: Yes (Other)
  Sender: FDA-Public Use
  Company Number: BR-US-EMD SERONO, INC.-7027475

PATIENT
  Sex: Female

DRUGS (4)
  1. REBIF [Suspect]
     Indication: RELAPSING-REMITTING MULTIPLE SCLEROSIS
  2. BACLOFEN [Concomitant]
  3. FLUOXETINE [Concomitant]
  4. CARBAMAZEPINE [Concomitant]

REACTIONS (6)
  - APHASIA [None]
  - DEPENDENCE [None]
  - INJECTION SITE ABSCESS [None]
  - MUSCLE SPASMS [None]
  - MUSCULOSKELETAL STIFFNESS [None]
  - PARESIS [None]
